APPROVED DRUG PRODUCT: SATRIC
Active Ingredient: METRONIDAZOLE
Strength: 500MG
Dosage Form/Route: TABLET;ORAL
Application: A070731 | Product #001
Applicant: SAVAGE LABORATORIES INC DIV ALTANA INC
Approved: Jun 8, 1987 | RLD: No | RS: No | Type: DISCN